FAERS Safety Report 14133136 (Version 1)
Quarter: 2017Q4

REPORT INFORMATION
  Report Type: Spontaneous
  Country: US (occurrence: None)
  Receive Date: 20171026
  Receipt Date: 20171026
  Transmission Date: 20180321
  Serious: Yes (Death)
  Sender: FDA-Public Use
  Company Number: None

PATIENT
  Age: 78 Year
  Sex: Female

DRUGS (6)
  1. ADCIRCA [Suspect]
     Active Substance: TADALAFIL
     Indication: PULMONARY ARTERIAL HYPERTENSION
     Route: 048
     Dates: start: 20140717, end: 20171022
  2. POTASSIUM [Concomitant]
     Active Substance: POTASSIUM
  3. ASA [Concomitant]
     Active Substance: ASPIRIN
  4. LETAIRIS [Concomitant]
     Active Substance: AMBRISENTAN
  5. BUMETANIDE. [Concomitant]
     Active Substance: BUMETANIDE
  6. LASIX [Concomitant]
     Active Substance: FUROSEMIDE

REACTIONS (1)
  - Cardiac failure [None]

NARRATIVE: CASE EVENT DATE: 20171022
